FAERS Safety Report 6093851-1 (Version None)
Quarter: 2009Q1

REPORT INFORMATION
  Report Type: 
  Country: None (occurrence: None)
  Receive Date: 20090226
  Receipt Date: 20090219
  Transmission Date: 20090719
  Serious: Yes (Hospitalization)
  Sender: FDA-Public Use
  Company Number: US-ASTRAZENECA-2009UW04712

PATIENT
  Age: 83 Year
  Sex: Female
  Weight: 57.2 kg

DRUGS (10)
  1. NEXIUM [Suspect]
     Indication: GASTROOESOPHAGEAL REFLUX DISEASE
     Route: 048
     Dates: start: 20050101
  2. DIGOXIN [Concomitant]
     Indication: HEART RATE IRREGULAR
     Dosage: .125 MG
     Route: 048
  3. WARFARIN [Concomitant]
     Route: 048
  4. PROVIGIL [Concomitant]
     Route: 048
  5. ATENOLOL [Concomitant]
     Route: 048
  6. FUROSEMIDE [Concomitant]
     Route: 048
  7. ASPIRIN [Concomitant]
     Route: 048
  8. ZYREM [Concomitant]
     Indication: CATAPLEXY
     Route: 048
  9. LIDODERM [Concomitant]
     Indication: FIBROMYALGIA
     Route: 061
  10. HYDROCODONE [Concomitant]
     Indication: FIBROMYALGIA
     Route: 048

REACTIONS (5)
  - DIARRHOEA [None]
  - DRY MOUTH [None]
  - HEART RATE IRREGULAR [None]
  - PAIN IN EXTREMITY [None]
  - PALPITATIONS [None]
